FAERS Safety Report 26133398 (Version 1)
Quarter: 2025Q4

REPORT INFORMATION
  Report Type: Spontaneous
  Country: US (occurrence: US)
  Receive Date: 20251209
  Receipt Date: 20251209
  Transmission Date: 20260117
  Serious: Yes (Hospitalization)
  Sender: ALEXION PHARMACEUTICALS
  Company Number: US-AstraZeneca-CH-01007053AP

PATIENT
  Sex: Female

DRUGS (1)
  1. NEXIUM 24HR [Suspect]
     Active Substance: ESOMEPRAZOLE MAGNESIUM
     Indication: Gastrooesophageal reflux disease

REACTIONS (7)
  - Product physical issue [Unknown]
  - Myocardial infarction [Unknown]
  - Off label use [Unknown]
  - Activities of daily living decreased [Unknown]
  - Expired product administered [Unknown]
  - Hypoacusis [Unknown]
  - Illness [Unknown]
